FAERS Safety Report 8371911-X (Version None)
Quarter: 2012Q2

REPORT INFORMATION
  Report Type: 
  Country: None (occurrence: None)
  Receive Date: 20120518
  Receipt Date: 20120511
  Transmission Date: 20120825
  Serious: Yes (Death)
  Sender: FDA-Public Use
  Company Number: CO-ROCHE-1068683

PATIENT
  Sex: Male
  Weight: 58 kg

DRUGS (5)
  1. MORPHINE SOLUTION [Concomitant]
     Route: 048
     Dates: start: 20120320, end: 20120509
  2. ACETAMINOPHEN [Concomitant]
     Dates: start: 20120226, end: 20120508
  3. SALBUTAMOL INHALER [Concomitant]
     Dosage: DOSE : 6 PUFFS
     Dates: start: 20120428, end: 20120508
  4. VEMURAFENIB [Suspect]
     Indication: METASTATIC MALIGNANT MELANOMA
     Route: 048
     Dates: start: 20120326
  5. METOCLOPRAMIDE [Concomitant]
     Dates: start: 20120424, end: 20120509

REACTIONS (3)
  - GENERAL PHYSICAL HEALTH DETERIORATION [None]
  - BRONCHITIS VIRAL [None]
  - ABDOMINAL PAIN [None]
